FAERS Safety Report 13592470 (Version 1)
Quarter: 2017Q2

REPORT INFORMATION
  Report Type: Other
  Country: DK (occurrence: DK)
  Receive Date: 20170530
  Receipt Date: 20170530
  Transmission Date: 20170830
  Serious: Yes (Hospitalization)
  Sender: FDA-Public Use
  Company Number: DK-CELLTRION INC.-2017DK006740

PATIENT

DRUGS (1)
  1. REMSIMA [Suspect]
     Active Substance: INFLIXIMAB
     Indication: CROHN^S DISEASE
     Dosage: 400 MG, 1 DOSAGE IN 6 WEEKS
     Route: 042
     Dates: start: 20170503, end: 20170503

REACTIONS (2)
  - Polyarthritis [Recovering/Resolving]
  - Serum sickness [Recovering/Resolving]

NARRATIVE: CASE EVENT DATE: 20170504
